FAERS Safety Report 4318872-8 (Version None)
Quarter: 2004Q1

REPORT INFORMATION
  Report Type: 
  Country: None (occurrence: None)
  Receive Date: 20040318
  Receipt Date: 20040202
  Transmission Date: 20041129
  Serious: Yes (Disabling)
  Sender: FDA-Public Use
  Company Number: US-ROCHE-357994

PATIENT
  Age: 47 Year
  Sex: Female

DRUGS (9)
  1. ACCUTANE [Suspect]
     Indication: ACNE
     Route: 048
     Dates: start: 20021210, end: 20030429
  2. PAXIL [Concomitant]
  3. CLARITIN [Concomitant]
  4. SOMA [Concomitant]
  5. DEPAKOTE [Concomitant]
  6. ALEVE [Concomitant]
  7. MELATONIN [Concomitant]
  8. DEMEROL [Concomitant]
  9. AMBIEN [Concomitant]

REACTIONS (16)
  - CHEST PAIN [None]
  - CONFUSIONAL STATE [None]
  - CYST [None]
  - DERMATITIS [None]
  - DISTURBANCE IN ATTENTION [None]
  - FATIGUE [None]
  - HEADACHE [None]
  - HIDRADENITIS [None]
  - KELOID SCAR [None]
  - NEURALGIA [None]
  - PAIN OF SKIN [None]
  - PRURITUS [None]
  - SCAR [None]
  - SELF MUTILATION [None]
  - SUICIDAL IDEATION [None]
  - SUICIDE ATTEMPT [None]
